FAERS Safety Report 9337850 (Version 1)
Quarter: 2013Q2

REPORT INFORMATION
  Report Type: Spontaneous
  Country: US (occurrence: US)
  Receive Date: 20130607
  Receipt Date: 20130607
  Transmission Date: 20140414
  Serious: No
  Sender: FDA-Public Use
  Company Number: US-AMGEN-USASP2013033067

PATIENT
  Age: 78 Year
  Sex: Female
  Weight: 62 kg

DRUGS (8)
  1. PROLIA [Suspect]
     Indication: OSTEOPOROSIS POSTMENOPAUSAL
     Dosage: 60 MG, Q6MO
     Route: 058
     Dates: start: 20130308
  2. PROLIA [Suspect]
     Dosage: UNK
     Dates: start: 20130508
  3. MIRTAZAPINE [Concomitant]
  4. ONDANSETRON [Concomitant]
  5. PRAVASTATIN [Concomitant]
  6. ASPIRIN [Concomitant]
  7. PROVIGIL                           /01265601/ [Concomitant]
  8. MULTIVITAMIN                       /02160401/ [Concomitant]

REACTIONS (1)
  - Inappropriate schedule of drug administration [Recovered/Resolved]
